FAERS Safety Report 24259463 (Version 3)
Quarter: 2024Q4

REPORT INFORMATION
  Report Type: Spontaneous
  Country: DE (occurrence: DE)
  Receive Date: 20240828
  Receipt Date: 20241129
  Transmission Date: 20250114
  Serious: Yes (Other)
  Sender: ALEXION PHARMACEUTICALS
  Company Number: 2024A193297

PATIENT
  Weight: 70 kg

DRUGS (6)
  1. SAPHNELO [Suspect]
     Active Substance: ANIFROLUMAB-FNIA
     Indication: Product used for unknown indication
     Dosage: UNK
  2. METHOTREXATE [Suspect]
     Active Substance: METHOTREXATE
  3. BELIMUMAB [Concomitant]
     Active Substance: BELIMUMAB
  4. ANIFROLUMAB [Concomitant]
     Active Substance: ANIFROLUMAB
  5. AZATHIOPRINE [Suspect]
     Active Substance: AZATHIOPRINE
  6. QUINACRINE [Suspect]
     Active Substance: QUINACRINE

REACTIONS (1)
  - Blindness unilateral [Recovered/Resolved]
